FAERS Safety Report 25806829 (Version 1)
Quarter: 2025Q3

REPORT INFORMATION
  Report Type: Spontaneous
  Country: US (occurrence: None)
  Receive Date: 20250915
  Receipt Date: 20250915
  Transmission Date: 20251021
  Serious: No
  Sender: FDA-CTU
  Company Number: None

PATIENT
  Sex: Female

DRUGS (4)
  1. PANZYGA [Suspect]
     Active Substance: HUMAN IMMUNOGLOBULIN G
     Indication: Chronic inflammatory demyelinating polyradiculoneuropathy
     Dosage: OTHER FREQUENCY : EVERY 3 WEEKS;?STRENGTH: 10GM/100ML
     Route: 042
     Dates: start: 20250126
  2. DIPHENHYDRAMINE (ALLERGY ) [Concomitant]
  3. NORMAL SALINE FLUSH (5ML) [Concomitant]
  4. ACETAMINOPHEN [Concomitant]
     Active Substance: ACETAMINOPHEN

REACTIONS (4)
  - Infusion related reaction [None]
  - Product quality issue [None]
  - Hypoaesthesia [None]
  - Muscle spasms [None]
